FAERS Safety Report 17350931 (Version 1)
Quarter: 2020Q1

REPORT INFORMATION
  Report Type: Spontaneous
  Country: US (occurrence: US)
  Receive Date: 20200130
  Receipt Date: 20200130
  Transmission Date: 20200409
  Serious: No
  Sender: FDA-Public Use
  Company Number: US-TEVA-2020-US-1175673

PATIENT
  Age: 62 Year
  Sex: Female

DRUGS (1)
  1. METFORMIN ER ACTAVIS [Suspect]
     Active Substance: METFORMIN HYDROCHLORIDE
     Route: 065

REACTIONS (3)
  - Gastrointestinal disorder [Unknown]
  - Product substitution issue [Unknown]
  - Weight decreased [Unknown]
